FAERS Safety Report 8082744-6 (Version None)
Quarter: 2012Q1

REPORT INFORMATION
  Report Type: 
  Country: None (occurrence: None)
  Receive Date: 20120127
  Receipt Date: 20110204
  Transmission Date: 20120608
  Serious: No
  Sender: FDA-Public Use
  Company Number: US-ABBOTT-11P-163-0703821-00

PATIENT
  Age: 62 Year
  Sex: Female

DRUGS (9)
  1. HUMIRA [Suspect]
     Indication: CROHN'S DISEASE
     Dates: start: 20090301
  2. CITALOPRAM [Concomitant]
     Indication: BLOOD CHOLESTEROL INCREASED
  3. SIMVASTATIN [Concomitant]
     Indication: BLOOD CHOLESTEROL INCREASED
  4. CETIRIZINE HCL [Concomitant]
     Indication: HYPERSENSITIVITY
  5. BONIVA [Concomitant]
     Indication: OSTEOPOROSIS
  6. OMEPRAZOLE [Concomitant]
     Indication: GASTROOESOPHAGEAL REFLUX DISEASE
  7. TRICOR [Concomitant]
     Indication: BLOOD CHOLESTEROL INCREASED
  8. ASPIRIN [Concomitant]
     Indication: CARDIAC DISORDER
  9. CHOLESTRAM [Concomitant]
     Indication: BLOOD CHOLESTEROL INCREASED

REACTIONS (5)
  - GASTROOESOPHAGEAL REFLUX DISEASE [None]
  - RASH PRURITIC [None]
  - POLYP [None]
  - DECREASED APPETITE [None]
  - ABDOMINAL PAIN UPPER [None]
